FAERS Safety Report 15450049 (Version 3)
Quarter: 2019Q2

REPORT INFORMATION
  Report Type: Spontaneous
  Country: US (occurrence: US)
  Receive Date: 20181001
  Receipt Date: 20190506
  Transmission Date: 20190711
  Serious: Yes (Hospitalization)
  Sender: FDA-Public Use
  Company Number: US-PFIZER INC-2018392817

PATIENT
  Age: 66 Year
  Sex: Female

DRUGS (2)
  1. LYRICA [Suspect]
     Active Substance: PREGABALIN
     Indication: NEUROPATHY PERIPHERAL
     Dosage: 50 MG, UNK
  2. LYRICA [Suspect]
     Active Substance: PREGABALIN
     Indication: INTERVERTEBRAL DISC PROTRUSION
     Dosage: 50 MG, 3X/DAY
     Route: 048
     Dates: start: 20180411, end: 201812

REACTIONS (5)
  - Pain [Recovered/Resolved]
  - Feeling drunk [Unknown]
  - Depression [Recovered/Resolved]
  - Dysarthria [Unknown]
  - Sciatica [Unknown]

NARRATIVE: CASE EVENT DATE: 201812
